FAERS Safety Report 10677939 (Version 1)
Quarter: 2014Q4

REPORT INFORMATION
  Report Type: Spontaneous
  Country: US (occurrence: US)
  Receive Date: 20141229
  Receipt Date: 20141229
  Transmission Date: 20150529
  Serious: No
  Sender: FDA-Public Use
  Company Number: US-BIOGENIDEC-2014BI135995

PATIENT
  Sex: Female

DRUGS (1)
  1. TYSABRI [Suspect]
     Active Substance: NATALIZUMAB
     Indication: MULTIPLE SCLEROSIS
     Route: 042
     Dates: start: 20131011

REACTIONS (6)
  - Coordination abnormal [Recovered/Resolved]
  - Musculoskeletal disorder [Recovered/Resolved]
  - Drug effect decreased [Recovered/Resolved]
  - Loss of control of legs [Recovered/Resolved]
  - Depressed mood [Recovered/Resolved]
  - Drug ineffective [Recovered/Resolved]
